FAERS Safety Report 7739507-8 (Version None)
Quarter: 2011Q3

REPORT INFORMATION
  Report Type: 
  Country: None (occurrence: None)
  Receive Date: 20110909
  Receipt Date: 20110902
  Transmission Date: 20111222
  Serious: Yes (Hospitalization, Other)
  Sender: FDA-Public Use
  Company Number: BR-BRISTOL-MYERS SQUIBB COMPANY-16032781

PATIENT
  Age: 48 Year
  Sex: Female
  Weight: 70 kg

DRUGS (1)
  1. IRBESARTAN + HYDROCHLOROTHIAZIDE [Suspect]
     Indication: HYPERTENSION
     Dosage: 1DF=1 TAB APROZIDE TABS 300MG/12.5MG INTERRUPTED IN 2011 AND RESTAT IN 2011
     Dates: start: 20010101

REACTIONS (4)
  - HYPERTENSIVE CRISIS [None]
  - URINARY TRACT INFECTION [None]
  - WEIGHT INCREASED [None]
  - DIABETES MELLITUS [None]
